FAERS Safety Report 5654507-X (Version None)
Quarter: 2008Q1

REPORT INFORMATION
  Report Type: 
  Country: None (occurrence: None)
  Receive Date: 20080307
  Receipt Date: 20080227
  Transmission Date: 20080703
  Serious: Yes (Death)
  Sender: FDA-Public Use
  Company Number: ES-WYE-G01174308

PATIENT
  Age: 58 Year
  Sex: Male

DRUGS (3)
  1. VANDRAL RETARD [Suspect]
     Indication: MAJOR DEPRESSION
     Route: 048
  2. VANDRAL RETARD [Suspect]
     Route: 048
  3. ESTROGENS [Concomitant]
     Indication: PROSTATE CANCER
     Dosage: UNKNOWN

REACTIONS (3)
  - BLOOD PRESSURE INCREASED [None]
  - CEREBROVASCULAR ACCIDENT [None]
  - ROAD TRAFFIC ACCIDENT [None]
